FAERS Safety Report 8917213 (Version 3)
Quarter: 2013Q2

REPORT INFORMATION
  Report Type: Report from Study
  Country: JP (occurrence: JP)
  Receive Date: 20121120
  Receipt Date: 20130617
  Transmission Date: 20140414
  Serious: Yes (Other)
  Sender: FDA-Public Use
  Company Number: JP-VERTEX PHARMACEUTICAL INC.-2012-024784

PATIENT
  Age: 58 Year
  Sex: Female

DRUGS (12)
  1. VX-950 (TELAPREVIR) [Suspect]
     Indication: CHRONIC HEPATITIS C
     Dosage: 1500 MG, QD
     Route: 048
     Dates: start: 20120806, end: 20120930
  2. VX-950 (TELAPREVIR) [Suspect]
     Dosage: 1000 MG, QD
     Route: 048
     Dates: start: 20121001, end: 20121105
  3. RIBAVIRIN [Suspect]
     Indication: CHRONIC HEPATITIS C
     Dosage: 400 MG, QD
     Route: 048
     Dates: start: 20120806, end: 20120826
  4. RIBAVIRIN [Suspect]
     Dosage: 200 MG, QD
     Route: 048
     Dates: start: 20120827, end: 20121216
  5. RIBAVIRIN [Suspect]
     Dosage: 400 MG, QD
     Route: 048
     Dates: start: 20121217, end: 20130121
  6. PEGINTERFERON ALFA-2B [Suspect]
     Indication: CHRONIC HEPATITIS C
     Dosage: 1.5 ?G/KG, QW
     Route: 058
     Dates: start: 20120806, end: 20120826
  7. PEGINTERFERON ALFA-2B [Suspect]
     Dosage: 0.75 ?G/KG, QW
     Route: 058
     Dates: start: 20120827, end: 20120917
  8. PEGINTERFERON ALFA-2B [Suspect]
     Dosage: 0.94 ?G/KG, QW
     Route: 058
     Dates: start: 20120918, end: 20120930
  9. PEGINTERFERON ALFA-2B [Suspect]
     Dosage: 0.75 ?G/KG, QW
     Route: 058
     Dates: start: 20121001, end: 20121216
  10. PEGINTERFERON ALFA-2B [Suspect]
     Dosage: 0.94 ?G/KG, QW
     Route: 058
     Dates: start: 20121217, end: 20130121
  11. URSO [Concomitant]
     Dosage: UNK
     Route: 048
  12. JUZENTAIHOTO [Concomitant]
     Dosage: 7.5 G, QD
     Route: 048
     Dates: start: 20120827

REACTIONS (1)
  - Retinal haemorrhage [Recovered/Resolved]
